FAERS Safety Report 7255163 (Version 4)
Quarter: 2014Q1

REPORT INFORMATION
  Report Type: Spontaneous
  Country: US (occurrence: US)
  Receive Date: 20100125
  Receipt Date: 20140130
  Transmission Date: 20141002
  Serious: Yes (Other)
  Sender: FDA-Public Use
  Company Number: US-BAYER-201011771NA

PATIENT
  Age: 26 Year
  Sex: Female

DRUGS (2)
  1. YAZ [Suspect]
     Indication: CONTRACEPTION
     Dates: start: 200807
  2. LEVONORGESTREL W/ETHINYLESTRADIOL [Concomitant]
     Route: 065

REACTIONS (4)
  - Cholecystitis chronic [None]
  - Cholelithiasis [None]
  - Cholecystectomy [Unknown]
  - Pain [Unknown]
